FAERS Safety Report 9444188 (Version 2)
Quarter: 2013Q4

REPORT INFORMATION
  Report Type: Report from Study
  Country: US (occurrence: US)
  Receive Date: 20130807
  Receipt Date: 20131212
  Transmission Date: 20140711
  Serious: Yes (Hospitalization)
  Sender: FDA-Public Use
  Company Number: US-JNJFOC-20130716942

PATIENT
  Age: 24 Year
  Sex: Female
  Weight: 134.5 kg

DRUGS (6)
  1. ACETAMINOPHEN [Suspect]
     Route: 065
  2. ACETAMINOPHEN [Suspect]
     Indication: SELF-INJURIOUS IDEATION
     Route: 065
  3. ETHANOL [Suspect]
     Indication: SELF-INJURIOUS IDEATION
     Route: 065
  4. SERTRALINE [Suspect]
     Indication: SELF-INJURIOUS IDEATION
     Route: 065
  5. GEODON [Suspect]
     Indication: SELF-INJURIOUS IDEATION
     Route: 065
  6. PHENTERMINE [Suspect]
     Indication: SELF-INJURIOUS IDEATION
     Route: 065

REACTIONS (1)
  - Vomiting [Recovered/Resolved]
